FAERS Safety Report 18181032 (Version 1)
Quarter: 2020Q3

REPORT INFORMATION
  Report Type: Spontaneous
  Country: US (occurrence: US)
  Receive Date: 20200820
  Receipt Date: 20200820
  Transmission Date: 20201103
  Serious: Yes (Hospitalization)
  Sender: FDA-Public Use
  Company Number: None

PATIENT
  Sex: Male

DRUGS (2)
  1. OCTREOTIDE 1ML PF SYR [Suspect]
     Active Substance: OCTREOTIDE
     Indication: DIARRHOEA
     Dosage: ?          OTHER FREQUENCY:EVERY8HOURSASNEEDE;?
     Route: 058
     Dates: start: 201811
  2. OCTREOTIDE 1ML PF SYR [Suspect]
     Active Substance: OCTREOTIDE
     Indication: AMYLOIDOSIS
     Dosage: ?          OTHER FREQUENCY:EVERY8HOURSASNEEDE;?
     Route: 058
     Dates: start: 201811

REACTIONS (3)
  - Therapy interrupted [None]
  - Gastrointestinal haemorrhage [None]
  - Hepatic enzyme increased [None]
